FAERS Safety Report 10162809 (Version 1)
Quarter: 2014Q2

REPORT INFORMATION
  Report Type: Spontaneous
  Country: NZ (occurrence: NZ)
  Receive Date: 20140509
  Receipt Date: 20140509
  Transmission Date: 20141212
  Serious: Yes (Death)
  Sender: FDA-Public Use
  Company Number: NZ-BAXTER-2014BAX022543

PATIENT
  Age: 55 Year
  Sex: Male

DRUGS (1)
  1. EXTRANEAL, 7.5%W/V, DIALYSIS SOLUTION [Suspect]
     Indication: PERITONEAL DIALYSIS
     Route: 033
     Dates: start: 20130802

REACTIONS (2)
  - Multi-organ failure [Fatal]
  - Pancreatitis necrotising [Fatal]
